FAERS Safety Report 6238883-5 (Version None)
Quarter: 2009Q2

REPORT INFORMATION
  Report Type: 
  Country: None (occurrence: None)
  Receive Date: 20090618
  Receipt Date: 20090610
  Transmission Date: 20091009
  Serious: Yes (Death)
  Sender: FDA-Public Use
  Company Number: VISP-NO-0905S-0226

PATIENT
  Age: 74 Year
  Sex: Male
  Weight: 60 kg

DRUGS (4)
  1. VISIPAQUE [Suspect]
     Indication: CHEST PAIN
     Dosage: 100 ML, SINGLE DOSE, I.A.; 320 ML, I.A.
     Route: 013
     Dates: start: 20081205, end: 20081205
  2. ASPIRIN [Concomitant]
  3. TIROFIBAN [Concomitant]
  4. HEPARIN [Concomitant]

REACTIONS (3)
  - ACUTE PULMONARY OEDEMA [None]
  - CARDIO-RESPIRATORY ARREST [None]
  - SURGICAL FAILURE [None]
